FAERS Safety Report 18495593 (Version 1)
Quarter: 2020Q4

REPORT INFORMATION
  Report Type: Report from Study
  Country: CN (occurrence: CN)
  Receive Date: 20201112
  Receipt Date: 20201112
  Transmission Date: 20210114
  Serious: Yes (Hospitalization)
  Sender: FDA-Public Use
  Company Number: CN-ROCHE-1967661

PATIENT
  Age: 60 Year
  Sex: Female
  Weight: 73 kg

DRUGS (39)
  1. LEVAMLODIPINE BESYLATE [Concomitant]
     Active Substance: LEVAMLODIPINE BESYLATE
     Dates: start: 2011
  2. TROPISETRON [Concomitant]
     Active Substance: TROPISETRON
     Indication: INFUSION RELATED REACTION
     Dates: start: 20170407, end: 20170407
  3. DEXAMETHASONE. [Concomitant]
     Active Substance: DEXAMETHASONE
     Indication: INFUSION RELATED REACTION
     Dates: start: 20170406, end: 20170408
  4. PANTOPRAZOLE [Concomitant]
     Active Substance: PANTOPRAZOLE
     Dates: start: 20170519, end: 20170519
  5. LEVOCARNITINE. [Concomitant]
     Active Substance: LEVOCARNITINE
     Dates: start: 20170724, end: 20170725
  6. MONOSIALOTETRAHEXOSYLGANGLIOSIDE [Concomitant]
     Active Substance: GANGLIOSIDE GM1
     Dates: start: 20170609, end: 20170610
  7. PLACEBO [Suspect]
     Active Substance: UNSPECIFIED INGREDIENT
     Dosage: MAINTENANCE DOSE.?MOST RECENT DOSE OF PERTUZUMAB: 30/JUN/2017.
     Route: 042
     Dates: start: 20170111
  8. TRASTUZUMAB. [Suspect]
     Active Substance: TRASTUZUMAB
     Indication: BREAST CANCER METASTATIC
     Dosage: LOADING DOSE (CYCLE 1)
     Route: 042
     Dates: start: 20161220, end: 20170712
  9. DOCETAXEL. [Suspect]
     Active Substance: DOCETAXEL
     Indication: BREAST CANCER METASTATIC
     Dosage: MOST RECENT DOSE OF DOCETAXEL PRIOR TO SAE : 07/APR/2017 (130.5 MG)
     Route: 042
     Dates: start: 20161220
  10. TROPISETRON [Concomitant]
     Active Substance: TROPISETRON
     Dates: start: 20170724, end: 20170725
  11. PANTOPRAZOLE [Concomitant]
     Active Substance: PANTOPRAZOLE
     Dates: start: 20170724, end: 20170725
  12. LEVOCARNITINE. [Concomitant]
     Active Substance: LEVOCARNITINE
     Indication: INFUSION RELATED REACTION
     Dates: start: 20170407, end: 20170408
  13. TROPISETRON [Concomitant]
     Active Substance: TROPISETRON
     Dates: start: 20170519, end: 20170519
  14. COENZYME COMPLEX [Concomitant]
     Active Substance: UNSPECIFIED INGREDIENT
     Dates: start: 20170609, end: 20170610
  15. COENZYME COMPLEX [Concomitant]
     Active Substance: UNSPECIFIED INGREDIENT
     Dates: start: 20170630, end: 20170701
  16. LEVOCARNITINE. [Concomitant]
     Active Substance: LEVOCARNITINE
     Dates: start: 20170428, end: 20170428
  17. LEVOCARNITINE. [Concomitant]
     Active Substance: LEVOCARNITINE
     Dates: start: 20170519, end: 20170519
  18. LEVOCARNITINE. [Concomitant]
     Active Substance: LEVOCARNITINE
     Dates: start: 20170630, end: 20170701
  19. GANGLIOSIDE [Concomitant]
     Indication: INFUSION RELATED REACTION
     Dates: start: 20170609, end: 20170610
  20. TRASTUZUMAB. [Suspect]
     Active Substance: TRASTUZUMAB
     Dosage: MAINTANANCE DOSE : MOST RECENT DOSE OF TRASTUZUMAB : 07/APR/2017 (420 MG)
     Route: 042
     Dates: start: 20170111
  21. DOCETAXEL. [Suspect]
     Active Substance: DOCETAXEL
     Route: 042
  22. LEVAMLODIPINE BESYLATE [Concomitant]
     Active Substance: LEVAMLODIPINE BESYLATE
     Indication: HYPERTENSION
     Dates: start: 20161213
  23. TROPISETRON [Concomitant]
     Active Substance: TROPISETRON
     Dates: start: 20170609, end: 20170610
  24. DEXAMETHASONE. [Concomitant]
     Active Substance: DEXAMETHASONE
     Dates: start: 20170724, end: 20170725
  25. PLACEBO [Suspect]
     Active Substance: UNSPECIFIED INGREDIENT
     Indication: BREAST CANCER METASTATIC
     Dosage: LOADING DOSE (CYCLE 1)
     Route: 042
     Dates: start: 20161220, end: 20161220
  26. DEXAMETHASONE. [Concomitant]
     Active Substance: DEXAMETHASONE
     Dates: start: 20170518, end: 20170519
  27. DEXAMETHASONE. [Concomitant]
     Active Substance: DEXAMETHASONE
     Dates: start: 20170608, end: 20170610
  28. PANTOPRAZOLE [Concomitant]
     Active Substance: PANTOPRAZOLE
     Dates: start: 20170630, end: 20170701
  29. COENZYME COMPLEX [Concomitant]
     Active Substance: UNSPECIFIED INGREDIENT
     Dates: start: 20170724, end: 20170725
  30. MONOSIALOTETRAHEXOSYLGANGLIOSIDE [Concomitant]
     Active Substance: GANGLIOSIDE GM1
     Indication: INFUSION RELATED REACTION
     Dates: start: 20170519, end: 20170519
  31. TROPISETRON [Concomitant]
     Active Substance: TROPISETRON
     Dates: start: 20170428, end: 20170428
  32. PANTOPRAZOLE [Concomitant]
     Active Substance: PANTOPRAZOLE
     Dates: start: 20170428, end: 20170428
  33. DEXAMETHASONE. [Concomitant]
     Active Substance: DEXAMETHASONE
     Dates: start: 20170629, end: 20170629
  34. PANTOPRAZOLE [Concomitant]
     Active Substance: PANTOPRAZOLE
     Dates: start: 20170609, end: 20170610
  35. COENZYME COMPLEX [Concomitant]
     Active Substance: UNSPECIFIED INGREDIENT
     Indication: INFUSION RELATED REACTION
     Dates: start: 20170407, end: 20170408
  36. DEXAMETHASONE. [Concomitant]
     Active Substance: DEXAMETHASONE
     Dates: start: 20170427, end: 20170427
  37. PANTOPRAZOLE [Concomitant]
     Active Substance: PANTOPRAZOLE
     Indication: INFUSION RELATED REACTION
     Dates: start: 20170407, end: 20170408
  38. COENZYME COMPLEX [Concomitant]
     Active Substance: UNSPECIFIED INGREDIENT
     Dates: start: 20170428, end: 20170428
  39. LEVOCARNITINE. [Concomitant]
     Active Substance: LEVOCARNITINE
     Dates: start: 20170609, end: 20170610

REACTIONS (1)
  - Ventricular arrhythmia [Recovered/Resolved]

NARRATIVE: CASE EVENT DATE: 20170426
